FAERS Safety Report 15545861 (Version 1)
Quarter: 2018Q4

REPORT INFORMATION
  Report Type: Spontaneous
  Country: US (occurrence: US)
  Receive Date: 20181023
  Receipt Date: 20181023
  Transmission Date: 20190205
  Serious: No
  Sender: FDA-Public Use
  Company Number: None

PATIENT
  Age: 48 Year
  Sex: Female
  Weight: 51.75 kg

DRUGS (3)
  1. VITAMIN C [Concomitant]
     Active Substance: ASCORBIC ACID
  2. VITAMIN D [Concomitant]
     Active Substance: CHOLECALCIFEROL
  3. VALACYCLOVIR 1GM [Suspect]
     Active Substance: VALACYCLOVIR HYDROCHLORIDE
     Indication: ORAL HERPES
     Route: 048
     Dates: start: 20181004, end: 20181008

REACTIONS (4)
  - Anal pruritus [None]
  - Vulvovaginal pruritus [None]
  - Pruritus [None]
  - Oral pruritus [None]

NARRATIVE: CASE EVENT DATE: 20181004
